FAERS Safety Report 24724146 (Version 4)
Quarter: 2025Q1

REPORT INFORMATION
  Report Type: Report from Study
  Country: US (occurrence: US)
  Receive Date: 20241211
  Receipt Date: 20250203
  Transmission Date: 20250409
  Serious: Yes (Hospitalization, Other)
  Sender: ABBVIE
  Company Number: US-ABBVIE-6038837

PATIENT
  Age: 63 Year
  Sex: Female
  Weight: 61 kg

DRUGS (3)
  1. RINVOQ [Suspect]
     Active Substance: UPADACITINIB
     Indication: Colitis ulcerative
     Route: 048
     Dates: start: 20230801
  2. HYDROCORTISONE [Concomitant]
     Active Substance: HYDROCORTISONE
     Indication: Nelson^s syndrome
  3. NORCO [Concomitant]
     Active Substance: ACETAMINOPHEN\HYDROCODONE BITARTRATE
     Indication: Failed back surgery syndrome

REACTIONS (5)
  - Cushing^s syndrome [Recovered/Resolved]
  - Cerebrospinal fluid retention [Unknown]
  - Brain fog [Unknown]
  - Sleep disorder [Unknown]
  - Back pain [Unknown]

NARRATIVE: CASE EVENT DATE: 20240501
